FAERS Safety Report 10061396 (Version 1)
Quarter: 2014Q2

REPORT INFORMATION
  Report Type: Report from Study
  Country: CA (occurrence: CA)
  Receive Date: 20140407
  Receipt Date: 20140407
  Transmission Date: 20141212
  Serious: Yes (Other)
  Sender: FDA-Public Use
  Company Number: CA-JNJFOC-20140401309

PATIENT
  Age: 55 Year
  Sex: Male
  Weight: 95.8 kg

DRUGS (5)
  1. REMICADE [Suspect]
     Indication: PSORIASIS
     Route: 042
     Dates: start: 20130430
  2. DOVOBET [Concomitant]
     Route: 065
  3. PRISTIQ [Concomitant]
     Route: 065
  4. TYLENOL WITH CODEINE [Concomitant]
     Dosage: DOSE: 3 AS POSSIBLE.
     Route: 065
  5. NAPROXEN [Concomitant]
     Dosage: AS POSSIBLE.
     Route: 065

REACTIONS (1)
  - Cyst [Recovered/Resolved]
